FAERS Safety Report 22040092 (Version 3)
Quarter: 2023Q1

REPORT INFORMATION
  Report Type: Spontaneous
  Country: US (occurrence: US)
  Receive Date: 20230227
  Receipt Date: 20230310
  Transmission Date: 20230417
  Serious: No
  Sender: FDA-Public Use
  Company Number: US-PFIZER INC-PV202300035780

PATIENT
  Age: 27 Year
  Sex: Female

DRUGS (6)
  1. EUCRISA [Suspect]
     Active Substance: CRISABOROLE
     Indication: Eczema
     Dosage: 2X/DAY
     Route: 061
  2. EUCRISA [Suspect]
     Active Substance: CRISABOROLE
     Indication: Skin lesion
  3. EUCRISA [Suspect]
     Active Substance: CRISABOROLE
     Indication: Rash erythematous
  4. EUCRISA [Suspect]
     Active Substance: CRISABOROLE
     Indication: Pigmentation disorder
  5. EUCRISA [Suspect]
     Active Substance: CRISABOROLE
     Indication: Dermatitis atopic
  6. TACROLIMUS [Concomitant]
     Active Substance: TACROLIMUS
     Dosage: UNK

REACTIONS (2)
  - Drug ineffective for unapproved indication [Unknown]
  - Off label use [Unknown]
